FAERS Safety Report 5149679-X (Version None)
Quarter: 2006Q4

REPORT INFORMATION
  Report Type: 
  Country: None (occurrence: None)
  Receive Date: 20061113
  Receipt Date: 20060712
  Transmission Date: 20070319
  Serious: Yes (Other)
  Sender: FDA-Public Use
  Company Number: US-GLAXOSMITHKLINE-A0612045A

PATIENT
  Age: 73 Year
  Sex: Male

DRUGS (9)
  1. COREG [Suspect]
     Dosage: 25MG FOUR TIMES PER DAY
     Route: 048
  2. ASPIRIN [Concomitant]
  3. COZAAR [Concomitant]
  4. ZOCOR [Concomitant]
  5. COUMADIN [Concomitant]
  6. AMBIEN [Concomitant]
  7. TYLENOL PM [Concomitant]
  8. CELEBREX [Concomitant]
  9. SYNTHROID [Concomitant]

REACTIONS (3)
  - ASTHENIA [None]
  - HYPOGLYCAEMIA [None]
  - VISION BLURRED [None]
